FAERS Safety Report 4758140-3 (Version None)
Quarter: 2005Q3

REPORT INFORMATION
  Report Type: 
  Country: None (occurrence: None)
  Receive Date: 20050829
  Receipt Date: 20050819
  Transmission Date: 20060218
  Serious: Yes (Other)
  Sender: FDA-Public Use
  Company Number: VISP-NO-0508S-0433

PATIENT
  Age: 56 Year
  Sex: Female

DRUGS (2)
  1. VISIPAQUE [Suspect]
     Dosage: 31 ML, MIN, I.A.
     Dates: start: 20041114, end: 20041114
  2. MORPHINE [Concomitant]

REACTIONS (3)
  - ARTERIAL SPASM [None]
  - CEREBROVASCULAR ACCIDENT [None]
  - SPINAL VASCULAR DISORDER [None]
